FAERS Safety Report 18942333 (Version 1)
Quarter: 2021Q1

REPORT INFORMATION
  Report Type: Report from Study
  Country: BR (occurrence: BR)
  Receive Date: 20210225
  Receipt Date: 20210225
  Transmission Date: 20210420
  Serious: Yes (Other)
  Sender: FDA-Public Use
  Company Number: BR-TAKEDA-BR201935620

PATIENT
  Sex: Male

DRUGS (2)
  1. HEMO?8R [Suspect]
     Active Substance: ANTIHEMOPHILIC FACTOR, HUMAN RECOMBINANT
     Indication: FACTOR VIII DEFICIENCY
     Dosage: UNK, 3/WEEK
     Route: 065
  2. HEMO?8R [Suspect]
     Active Substance: ANTIHEMOPHILIC FACTOR, HUMAN RECOMBINANT
     Dosage: 250 INTERNATIONAL UNIT, 2/WEEK
     Route: 042
     Dates: start: 2012

REACTIONS (6)
  - Loss of consciousness [Unknown]
  - Product availability issue [Unknown]
  - Drug ineffective [Unknown]
  - Illness [Unknown]
  - Unevaluable event [Unknown]
  - Pain [Unknown]
